FAERS Safety Report 4458606-X (Version None)
Quarter: 2004Q3

REPORT INFORMATION
  Report Type: 
  Country: None (occurrence: None)
  Receive Date: 20040917
  Receipt Date: 20031021
  Transmission Date: 20050211
  Serious: Yes (Hospitalization)
  Sender: FDA-Public Use
  Company Number: US-JNJFOC-20030801954

PATIENT
  Age: 42 Year
  Sex: Male

DRUGS (5)
  1. TOPAMAX [Suspect]
     Indication: DRUG USE FOR UNKNOWN INDICATION
     Dosage: 50 MG; 25 MG : 2 IN 1 DAY, ORAL
     Route: 048
  2. ANALGESICS ( ) ANALGESICS [Concomitant]
  3. AMITRIPTYLINE ( ) ANITRIPTYLINE [Concomitant]
  4. CLONAZEPAM [Concomitant]
  5. VALDECOXIB [Concomitant]

REACTIONS (1)
  - HYPERGLYCAEMIA [None]
